FAERS Safety Report 6346949-4 (Version None)
Quarter: 2009Q3

REPORT INFORMATION
  Report Type: 
  Country: None (occurrence: None)
  Receive Date: 20090908
  Receipt Date: 20090908
  Transmission Date: 20100115
  Serious: No
  Sender: FDA-Public Use
  Company Number: None

PATIENT
  Age: 74 Year
  Sex: Female
  Weight: 63.5036 kg

DRUGS (2)
  1. PRILOSEC [Suspect]
     Indication: GASTROOESOPHAGEAL REFLUX DISEASE
     Dosage: 1 TAB ONCE A DAY PO
     Route: 048
     Dates: start: 20090715, end: 20090905
  2. OMEPRAZOLE [Suspect]
     Indication: GASTROOESOPHAGEAL REFLUX DISEASE
     Dosage: 1 TAB ONCE A DAY PO
     Route: 048
     Dates: start: 20090715, end: 20090905

REACTIONS (2)
  - PRURITUS GENERALISED [None]
  - SCRATCH [None]
